FAERS Safety Report 4619594-6 (Version None)
Quarter: 2005Q2

REPORT INFORMATION
  Report Type: 
  Country: None (occurrence: None)
  Receive Date: 20050321
  Receipt Date: 20040616
  Transmission Date: 20051028
  Serious: Yes (Other)
  Sender: FDA-Public Use
  Company Number: 2004-06-1088

PATIENT
  Age: 56 Year
  Sex: Female
  Weight: 122.0176 kg

DRUGS (8)
  1. PEG-INTRON [Suspect]
     Indication: HEPATITIS C
     Dosage: SUBCUTANEOUS
     Route: 058
     Dates: start: 20030301, end: 20040523
  2. REBETOL [Suspect]
     Indication: HEPATITIS C
     Dosage: ORAL
     Route: 048
     Dates: start: 20030301, end: 20040523
  3. CELEBREX [Concomitant]
  4. PREVACID CAPSULES [Concomitant]
  5. KLOR-CON TABLETS [Concomitant]
  6. FUROSEMIDE [Concomitant]
  7. CENTRUM TABLETS [Concomitant]
  8. FEOSOL TABLETS [Concomitant]

REACTIONS (8)
  - ANOREXIA [None]
  - DISCOMFORT [None]
  - FATIGUE [None]
  - INFECTION IN AN IMMUNOCOMPROMISED HOST [None]
  - IRRITABILITY [None]
  - MUSCULOSKELETAL DISCOMFORT [None]
  - PHARYNX DISCOMFORT [None]
  - STOMACH DISCOMFORT [None]
